FAERS Safety Report 4349417-4 (Version None)
Quarter: 2004Q2

REPORT INFORMATION
  Report Type: 
  Country: None (occurrence: None)
  Receive Date: 20040426
  Receipt Date: 20040419
  Transmission Date: 20050107
  Serious: Yes (Other)
  Sender: FDA-Public Use
  Company Number: 200410405BVD

PATIENT

DRUGS (1)
  1. CIPROBAY (CIPROFLOXACIN HYDROCHLORIDE) [Suspect]

REACTIONS (2)
  - DIAPHRAGMATIC DISORDER [None]
  - PARESIS [None]
